FAERS Safety Report 4909055-9 (Version None)
Quarter: 2006Q1

REPORT INFORMATION
  Report Type: 
  Country: None (occurrence: None)
  Receive Date: 20060209
  Receipt Date: 20060209
  Transmission Date: 20060701
  Serious: Yes (Other)
  Sender: FDA-Public Use
  Company Number: None

PATIENT
  Sex: Female
  Weight: 62.5964 kg

DRUGS (2)
  1. TAMOXIFEN CITRATE [Suspect]
     Indication: BREAST CANCER
     Dosage: 20 MT DAILY PO
     Route: 048
     Dates: start: 20050118, end: 20050127
  2. TAMOXIFEN CITRATE [Suspect]
     Indication: BREAST CANCER
     Dosage: 41 MG QDX14 DAYS, THEN 20 MG QD DAILY PO
     Route: 048
     Dates: start: 20051008, end: 20051103

REACTIONS (12)
  - ARTHRALGIA [None]
  - CRYING [None]
  - DEPRESSION [None]
  - DRY MOUTH [None]
  - FLUID RETENTION [None]
  - HOT FLUSH [None]
  - HYPERTHYROIDISM [None]
  - NAIL DISORDER [None]
  - OEDEMA PERIPHERAL [None]
  - ONYCHALGIA [None]
  - PAIN IN EXTREMITY [None]
  - SLEEP DISORDER [None]
